FAERS Safety Report 10029486 (Version 1)
Quarter: 2014Q1

REPORT INFORMATION
  Report Type: Spontaneous
  Country: US (occurrence: US)
  Receive Date: 20140322
  Receipt Date: 20140322
  Transmission Date: 20141002
  Serious: Yes (Other)
  Sender: FDA-Public Use
  Company Number: US-AMGEN-USASP2014018766

PATIENT
  Age: 70 Year
  Sex: Female

DRUGS (7)
  1. PROLIA [Suspect]
     Indication: OSTEOPOROSIS POSTMENOPAUSAL
     Dosage: UNK
     Route: 065
     Dates: start: 2013
  2. HYDROCODONE [Concomitant]
     Indication: BACK DISORDER
     Dosage: UNK UNK, QD
     Route: 065
  3. SIMVASTATIN [Concomitant]
     Indication: BLOOD CHOLESTEROL INCREASED
     Dosage: UNK
     Route: 065
  4. FLUOXETINE [Concomitant]
     Dosage: UNK
     Route: 065
  5. LABETALOL [Concomitant]
     Dosage: UNK
     Route: 065
  6. LANSOPRAZOLE [Concomitant]
     Dosage: UNK
     Route: 065
  7. SUDAFED                            /00076302/ [Concomitant]
     Indication: SINUS DISORDER
     Dosage: UNK UNK, Q12H
     Route: 065

REACTIONS (3)
  - Tooth abscess [Unknown]
  - Toothache [Unknown]
  - Joint crepitation [Not Recovered/Not Resolved]
